FAERS Safety Report 10906033 (Version 1)
Quarter: 2015Q1

REPORT INFORMATION
  Report Type: Spontaneous
  Country: FR (occurrence: FR)
  Receive Date: 20150311
  Receipt Date: 20150311
  Transmission Date: 20150721
  Serious: Yes (Hospitalization)
  Sender: FDA-Public Use
  Company Number: FR-BAXTER-2015BAX012019

PATIENT
  Age: 65 Year
  Sex: Female

DRUGS (21)
  1. ENDOXAN 1000 MG, POUDRE POUR SOLUTION INJECTABLE [Suspect]
     Active Substance: CYCLOPHOSPHAMIDE
     Indication: SJOGREN^S SYNDROME
     Route: 042
     Dates: start: 20130703, end: 20131202
  2. VOGALENE [Concomitant]
     Active Substance: METOPIMAZINE
     Indication: VOMITING
     Route: 048
  3. DOLIPRANE [Concomitant]
     Active Substance: ACETAMINOPHEN
     Indication: DRUG THERAPY
     Route: 048
  4. ALPRAZOLAM. [Concomitant]
     Active Substance: ALPRAZOLAM
     Indication: DRUG THERAPY
     Route: 048
  5. INEXIUM [Concomitant]
     Active Substance: ESOMEPRAZOLE
     Indication: DRUG THERAPY
     Route: 048
  6. ADROVANCE [Concomitant]
     Active Substance: ALENDRONATE SODIUM\CHOLECALCIFEROL
     Indication: DRUG THERAPY
     Route: 048
  7. CONTRIMOXAZOLE [Concomitant]
     Indication: DRUG THERAPY
     Route: 065
  8. LYRICA [Concomitant]
     Active Substance: PREGABALIN
     Indication: DRUG THERAPY
     Route: 048
  9. VOGALENE [Concomitant]
     Active Substance: METOPIMAZINE
     Indication: DRUG THERAPY
  10. TRANSIPEG [Concomitant]
     Active Substance: POLYETHYLENE GLYCOL 3350
     Indication: DRUG THERAPY
     Route: 048
  11. MABTHERA [Suspect]
     Active Substance: RITUXIMAB
     Dosage: 5TH COURSE
     Route: 042
     Dates: start: 200910, end: 200910
  12. MABTHERA [Suspect]
     Active Substance: RITUXIMAB
     Dosage: 6TH COURSE
     Route: 042
     Dates: start: 201005, end: 201005
  13. TARDYFERON [Concomitant]
     Active Substance: FERROUS SULFATE\FOLIC ACID
     Indication: DRUG THERAPY
     Route: 048
  14. SEROPLEX [Concomitant]
     Active Substance: ESCITALOPRAM OXALATE
     Indication: DRUG THERAPY
     Route: 048
  15. GAVISCON [Concomitant]
     Active Substance: ALUMINUM HYDROXIDE\MAGNESIUM CARBONATE
     Indication: DRUG THERAPY
     Route: 048
  16. MABTHERA [Suspect]
     Active Substance: RITUXIMAB
     Dosage: 8TH COURSE
     Route: 042
     Dates: start: 201204, end: 201204
  17. ZOLPIDEM [Concomitant]
     Active Substance: ZOLPIDEM\ZOLPIDEM TARTRATE
     Indication: DRUG THERAPY
     Route: 065
  18. MABTHERA [Suspect]
     Active Substance: RITUXIMAB
     Dosage: 7TH COURSE
     Route: 042
     Dates: start: 201108, end: 201108
  19. PLAQUENIL [Concomitant]
     Active Substance: HYDROXYCHLOROQUINE SULFATE
     Indication: DRUG THERAPY
     Route: 048
  20. MABTHERA [Suspect]
     Active Substance: RITUXIMAB
     Indication: SJOGREN^S SYNDROME
     Dosage: 8 COURSES
     Route: 042
     Dates: start: 2008, end: 2013
  21. CORTANCYL [Suspect]
     Active Substance: PREDNISONE
     Indication: SJOGREN^S SYNDROME
     Route: 048
     Dates: start: 2009

REACTIONS (1)
  - Hypogammaglobulinaemia [Not Recovered/Not Resolved]

NARRATIVE: CASE EVENT DATE: 201307
